FAERS Safety Report 10233299 (Version 2)
Quarter: 2014Q2

REPORT INFORMATION
  Report Type: Spontaneous
  Country: AU (occurrence: AU)
  Receive Date: 20140612
  Receipt Date: 20140620
  Transmission Date: 20141212
  Serious: Yes (Other)
  Sender: FDA-Public Use
  Company Number: AU-VERTEX PHARMACEUTICALS INC-2014-002678

PATIENT
  Age: 50 Year
  Sex: Male
  Weight: 90 kg

DRUGS (3)
  1. INCIVO [Suspect]
     Indication: HEPATITIS C
     Dosage: 375 MG, UNK
     Route: 065
     Dates: start: 20140122, end: 20140331
  2. PEGYLATED INTERFERON [Suspect]
     Indication: HEPATITIS C
     Dosage: 180 MG, UNK
     Route: 065
     Dates: start: 20140122
  3. RIBAVIRIN [Suspect]
     Indication: HEPATITIS C
     Dosage: 1200 MG, UNK
     Route: 065
     Dates: start: 20140122

REACTIONS (3)
  - Rash [Recovered/Resolved]
  - Pyrexia [Recovering/Resolving]
  - Blister [Recovering/Resolving]
